FAERS Safety Report 9761519 (Version 1)
Quarter: 2013Q4

REPORT INFORMATION
  Report Type: Spontaneous
  Country: US (occurrence: US)
  Receive Date: 20131216
  Receipt Date: 20131216
  Transmission Date: 20140711
  Serious: No
  Sender: FDA-Public Use
  Company Number: US-BIOGENIDEC-2013BI109232

PATIENT
  Age: 38 Year
  Sex: Female

DRUGS (10)
  1. TECFIDERA [Suspect]
     Indication: MULTIPLE SCLEROSIS
     Route: 048
     Dates: start: 20130510
  2. FORTEO [Concomitant]
  3. AMBIEN [Concomitant]
  4. BACLOFEN [Concomitant]
  5. IMITREX [Concomitant]
  6. ALEVE [Concomitant]
  7. CALCIUM [Concomitant]
  8. VITAMIN D [Concomitant]
  9. ALBUTEROL SULFATE [Concomitant]
  10. TIZANIDINE [Concomitant]

REACTIONS (1)
  - Contusion [Unknown]
